FAERS Safety Report 10369592 (Version 1)
Quarter: 2014Q3

REPORT INFORMATION
  Report Type: Spontaneous
  Country: US (occurrence: US)
  Receive Date: 20140807
  Receipt Date: 20140807
  Transmission Date: 20150326
  Serious: No
  Sender: FDA-Public Use
  Company Number: US-AMGEN INC.-USASP2014023808

PATIENT
  Age: 43 Year
  Sex: Female

DRUGS (31)
  1. HERCEPTIN [Suspect]
     Active Substance: TRASTUZUMAB
     Dosage: 144 MG, UNK
     Route: 042
     Dates: start: 20120928
  2. HERCEPTIN [Suspect]
     Active Substance: TRASTUZUMAB
     Dosage: 142 MG, UNK
     Route: 042
     Dates: start: 20121026
  3. PACLITAXEL. [Concomitant]
     Active Substance: PACLITAXEL
     Dosage: 145 MG, UNK
     Route: 042
     Dates: start: 20121017
  4. HERCEPTIN [Suspect]
     Active Substance: TRASTUZUMAB
     Dosage: 150 MG, UNK
     Route: 042
     Dates: start: 20120817
  5. HERCEPTIN [Suspect]
     Active Substance: TRASTUZUMAB
     Dosage: 144 MG, UNK
     Route: 042
     Dates: start: 20120907
  6. HERCEPTIN [Suspect]
     Active Substance: TRASTUZUMAB
     Dosage: 378 MG, UNK
     Route: 042
     Dates: start: 20130208
  7. HERCEPTIN [Suspect]
     Active Substance: TRASTUZUMAB
     Dosage: 378 MG, UNK
     Route: 042
     Dates: start: 20130301
  8. NEUPOGEN [Suspect]
     Active Substance: FILGRASTIM
     Indication: PRODUCT USED FOR UNKNOWN INDICATION
     Dosage: 300 MG, UNK
     Route: 058
     Dates: start: 20121015
  9. HERCEPTIN [Suspect]
     Active Substance: TRASTUZUMAB
     Dosage: 140 MG, UNK
     Route: 042
     Dates: start: 20120921
  10. HERCEPTIN [Suspect]
     Active Substance: TRASTUZUMAB
     Dosage: 420 MG, UNK
     Route: 042
     Dates: start: 20121116
  11. HERCEPTIN [Suspect]
     Active Substance: TRASTUZUMAB
     Dosage: 420 MG, UNK
     Route: 042
     Dates: start: 20121228
  12. HERCEPTIN [Suspect]
     Active Substance: TRASTUZUMAB
     Dosage: 278 MG, UNK
     Route: 042
     Dates: start: 20130118
  13. PEPCID [Concomitant]
     Active Substance: FAMOTIDINE
     Dosage: 20 MG, UNK
     Route: 042
     Dates: start: 20120810
  14. DECADRON [Concomitant]
     Active Substance: DEXAMETHASONE
     Dosage: 20 MG, UNK
     Route: 042
     Dates: start: 20120810
  15. ZOFRAN                             /00955301/ [Concomitant]
     Active Substance: ONDANSETRON HYDROCHLORIDE
     Dosage: 16 MG, UNK
     Route: 042
     Dates: start: 20120810
  16. PACLITAXEL. [Concomitant]
     Active Substance: PACLITAXEL
     Dosage: 146 MG, UNK
     Route: 042
     Dates: start: 20120928
  17. HERCEPTIN [Suspect]
     Active Substance: TRASTUZUMAB
     Dosage: 144 MG, UNK
     Route: 042
     Dates: start: 20121005
  18. HERCEPTIN [Suspect]
     Active Substance: TRASTUZUMAB
     Dosage: 360 MG, UNK
     Route: 042
     Dates: start: 20130503
  19. BENADRYL [Suspect]
     Active Substance: DIPHENHYDRAMINE HYDROCHLORIDE
     Indication: PRODUCT USED FOR UNKNOWN INDICATION
     Dosage: 50 MG, UNK
     Route: 042
     Dates: start: 20120810
  20. HERCEPTIN [Suspect]
     Active Substance: TRASTUZUMAB
     Indication: BREAST CANCER
     Dosage: 300 MG, UNK
     Route: 042
     Dates: start: 20120810
  21. HERCEPTIN [Suspect]
     Active Substance: TRASTUZUMAB
     Dosage: 360 MG, UNK
     Route: 042
     Dates: start: 20130412
  22. HERCEPTIN [Suspect]
     Active Substance: TRASTUZUMAB
     Dosage: 144 MG, UNK
     Route: 042
     Dates: start: 20120914
  23. HERCEPTIN [Suspect]
     Active Substance: TRASTUZUMAB
     Dosage: 144 MG, UNK
     Route: 042
     Dates: start: 20120924
  24. TAXOL [Concomitant]
     Active Substance: PACLITAXEL
     Dosage: 149 MG, UNK
     Route: 042
     Dates: start: 20120810
  25. TAXOL [Concomitant]
     Active Substance: PACLITAXEL
     Dosage: 145 MG, UNK
     Route: 042
     Dates: start: 20121026
  26. HERCEPTIN [Suspect]
     Active Substance: TRASTUZUMAB
     Dosage: 142 MG, UNK
     Route: 042
     Dates: start: 20121017
  27. HERCEPTIN [Suspect]
     Active Substance: TRASTUZUMAB
     Dosage: 420 MG, UNK
     Route: 042
     Dates: start: 20121207
  28. PACLITAXEL. [Concomitant]
     Active Substance: PACLITAXEL
     Dosage: 146 MG, UNK
     Route: 042
     Dates: start: 20121005
  29. HERCEPTIN [Suspect]
     Active Substance: TRASTUZUMAB
     Dosage: 366 MG, UNK
     Route: 042
     Dates: start: 20130322
  30. TYLENOL [Concomitant]
     Active Substance: ACETAMINOPHEN
     Dosage: 650 MG, UNK
     Route: 048
     Dates: start: 20120810
  31. ATIVAN [Concomitant]
     Active Substance: LORAZEPAM
     Dosage: 0.5 MG, UNK
     Route: 042
     Dates: start: 20121026

REACTIONS (4)
  - Erythema [Unknown]
  - Swelling [Unknown]
  - Headache [Unknown]
  - Restlessness [Unknown]
